FAERS Safety Report 10240226 (Version 1)
Quarter: 2014Q2

REPORT INFORMATION
  Report Type: Spontaneous
  Country: JP (occurrence: JP)
  Receive Date: 20140617
  Receipt Date: 20140617
  Transmission Date: 20141212
  Serious: Yes (Other)
  Sender: FDA-Public Use
  Company Number: PHHY2014JP073481

PATIENT
  Sex: 0

DRUGS (2)
  1. RIVASTIGMIN [Suspect]
     Indication: DEMENTIA ALZHEIMER^S TYPE
     Dosage: 18MG (9.5 MG/24 HOURS), ONCE A DAY
     Route: 062
     Dates: start: 20120131
  2. RIVASTIGMIN [Suspect]
     Dosage: SIX 18 MG PATCHES
     Route: 062
     Dates: start: 20120303

REACTIONS (8)
  - Paramnesia [Unknown]
  - Delusion [Unknown]
  - Dysarthria [Unknown]
  - Restlessness [Unknown]
  - Blood pressure increased [Unknown]
  - Application site rash [Unknown]
  - Overdose [Unknown]
  - Wrong technique in drug usage process [Unknown]
